APPROVED DRUG PRODUCT: GEMCITABINE HYDROCHLORIDE
Active Ingredient: GEMCITABINE HYDROCHLORIDE
Strength: 2GM/52.6ML (38MG/ML)
Dosage Form/Route: INJECTABLE;INJECTION
Application: A204549 | Product #003
Applicant: ACTAVIS INC
Approved: Apr 11, 2016 | RLD: No | RS: No | Type: DISCN